FAERS Safety Report 4410645-0 (Version None)
Quarter: 2004Q3

REPORT INFORMATION
  Report Type: 
  Country: None (occurrence: None)
  Receive Date: 20040729
  Receipt Date: 20040415
  Transmission Date: 20050211
  Serious: No
  Sender: FDA-Public Use
  Company Number: US-BRISTOL-MYERS SQUIBB COMPANY-12561429

PATIENT
  Sex: Female

DRUGS (4)
  1. PARAPLATIN AQ [Suspect]
     Indication: BREAST CANCER
     Route: 042
     Dates: start: 20040408, end: 20040408
  2. TAXOL [Concomitant]
  3. BENADRYL [Concomitant]
  4. DECADRON [Concomitant]

REACTIONS (2)
  - ERYTHEMA [None]
  - PRURITUS [None]
